FAERS Safety Report 23715067 (Version 1)
Quarter: 2024Q2

REPORT INFORMATION
  Report Type: Report from Study
  Country: DE (occurrence: DE)
  Receive Date: 20240406
  Receipt Date: 20240406
  Transmission Date: 20240716
  Serious: Yes (Life-Threatening, Other)
  Sender: FDA-Public Use
  Company Number: DE-UCBSA-2024016056

PATIENT

DRUGS (3)
  1. LACOSAMIDE [Suspect]
     Active Substance: LACOSAMIDE
     Indication: Epilepsy
     Dosage: MINIMUM 450 MILLIGRAM AND MAXIMUM 600 MILLIGRAM DAILY (MEDIAN DOSE: 500 MILLIGRAM)
  2. LEVETIRACETAM [Suspect]
     Active Substance: LEVETIRACETAM
     Indication: Epilepsy
     Dosage: MINIMUM 3500 AND MAXIMUM 6000/7000 MILLIGRAM DAILY (MEDIAN DOSE: 4000 MILLIGRAM DAILY)
  3. OXCARBAZEPINE [Suspect]
     Active Substance: OXCARBAZEPINE
     Indication: Epilepsy
     Dosage: MIN 2550 MG, MAX 3850 MG DAILY (MEDIAN DOSE: 3000 MG DAILY), MIN 250 MG, MAX 3600 MG DAILY (MEDIAN D

REACTIONS (47)
  - Atrial fibrillation [Unknown]
  - Suicidal ideation [Unknown]
  - Hypokalaemia [Unknown]
  - Mental impairment [Unknown]
  - Paraesthesia [Unknown]
  - Anxiety [Unknown]
  - Weight increased [Unknown]
  - Weight decreased [Unknown]
  - Decreased appetite [Unknown]
  - Hyponatraemia [Unknown]
  - Insomnia [Unknown]
  - Sleep disorder [Unknown]
  - Agitation [Unknown]
  - Nervousness [Unknown]
  - Irritability [Unknown]
  - Aggression [Unknown]
  - Apathy [Unknown]
  - Listless [Unknown]
  - Mood swings [Unknown]
  - Depressed mood [Unknown]
  - Confusional state [Unknown]
  - Fatigue [Unknown]
  - Dizziness [Unknown]
  - Nystagmus [Unknown]
  - Tremor [Unknown]
  - Balance disorder [Unknown]
  - Ataxia [Unknown]
  - Disturbance in attention [Unknown]
  - Memory impairment [Unknown]
  - Speech disorder [Unknown]
  - Bradyphrenia [Unknown]
  - Headache [Unknown]
  - Dysgeusia [Unknown]
  - Vision blurred [Unknown]
  - Diplopia [Unknown]
  - Tinnitus [Unknown]
  - Nausea [Unknown]
  - Vomiting [Unknown]
  - Diarrhoea [Unknown]
  - Constipation [Unknown]
  - Flatulence [Unknown]
  - Hepatic enzyme increased [Unknown]
  - Hypersensitivity [Unknown]
  - Pruritus [Unknown]
  - Alopecia [Unknown]
  - Myoclonus [Unknown]
  - Off label use [Unknown]
